FAERS Safety Report 20186368 (Version 1)
Quarter: 2021Q4

REPORT INFORMATION
  Report Type: Spontaneous
  Country: US (occurrence: US)
  Receive Date: 20211215
  Receipt Date: 20211215
  Transmission Date: 20220304
  Serious: No
  Sender: FDA-Public Use
  Company Number: US-RECKITT BENCKISER HEALTHCARE INT LIMITED-RB-82365-2021

PATIENT
  Age: 30 Year
  Sex: Female

DRUGS (1)
  1. DELSYM [Suspect]
     Active Substance: DEXTROMETHORPHAN
     Indication: Cough
     Dosage: 10 MILLILITER, QD
     Route: 065
     Dates: start: 20201226, end: 20201227

REACTIONS (3)
  - Paraesthesia [Recovered/Resolved]
  - Mydriasis [Recovered/Resolved]
  - Dizziness [Recovered/Resolved]
